FAERS Safety Report 6567976-8 (Version None)
Quarter: 2010Q1

REPORT INFORMATION
  Report Type: 
  Country: None (occurrence: None)
  Receive Date: 20100203
  Receipt Date: 20100120
  Transmission Date: 20100710
  Serious: Yes (Hospitalization)
  Sender: FDA-Public Use
  Company Number: PHHY2010BE03669

PATIENT
  Age: 82 Year
  Sex: Female

DRUGS (2)
  1. GLEEVEC [Suspect]
     Indication: CHRONIC MYELOID LEUKAEMIA
  2. CORTICOSTEROIDS [Suspect]

REACTIONS (3)
  - BRONCHIECTASIS [None]
  - DRUG HYPERSENSITIVITY [None]
  - PNEUMONIA CYTOMEGALOVIRAL [None]
